FAERS Safety Report 14615848 (Version 1)
Quarter: 2018Q1

REPORT INFORMATION
  Report Type: Spontaneous
  Country: IT (occurrence: IT)
  Receive Date: 20180309
  Receipt Date: 20180309
  Transmission Date: 20180509
  Serious: Yes (Hospitalization)
  Sender: FDA-Public Use
  Company Number: IT-CIPLA LTD.-2018IT09038

PATIENT

DRUGS (1)
  1. LEVOFLOXACIN. [Suspect]
     Active Substance: LEVOFLOXACIN
     Indication: DYSPNOEA
     Dosage: 1 DF, IN TOTAL
     Route: 065
     Dates: start: 20170422, end: 20170422

REACTIONS (2)
  - Confusional state [Unknown]
  - Clonus [Unknown]

NARRATIVE: CASE EVENT DATE: 20170422
